FAERS Safety Report 6614352-5 (Version None)
Quarter: 2010Q1

REPORT INFORMATION
  Report Type: 
  Country: None (occurrence: None)
  Receive Date: 20100303
  Receipt Date: 20100303
  Transmission Date: 20100710
  Serious: Yes (Hospitalization)
  Sender: FDA-Public Use
  Company Number: None

PATIENT
  Sex: Male
  Weight: 82.3279 kg

DRUGS (10)
  1. IXABEPILONE [Suspect]
     Dosage: 32 MG DAY 1, 8, + 15
  2. SUNITINIB MALATE [Suspect]
     Dosage: 37.5 MG DAILY STARTING ON DAY 8
  3. MEGESTROL [Concomitant]
  4. PANCRELIPASE [Concomitant]
  5. NEXIUM [Concomitant]
  6. PROPRANOLOL HYDROCHLORIDE [Concomitant]
  7. MULTI-VITAMIN [Concomitant]
  8. ZINC SULFATE [Concomitant]
  9. VIT C [Concomitant]
  10. PERCOCET [Concomitant]

REACTIONS (3)
  - FATIGUE [None]
  - PNEUMONIA [None]
  - WALKING AID USER [None]
